FAERS Safety Report 5119111-0 (Version None)
Quarter: 2006Q3

REPORT INFORMATION
  Report Type: 
  Country: None (occurrence: None)
  Receive Date: 20060926
  Receipt Date: 20060920
  Transmission Date: 20061208
  Serious: Yes (Life-Threatening, Hospitalization)
  Sender: FDA-Public Use
  Company Number: HQWYE192412JUN06

PATIENT
  Age: 56 Year
  Sex: Male

DRUGS (10)
  1. RAPAMUNE [Suspect]
     Indication: PROPHYLAXIS AGAINST TRANSPLANT REJECTION
     Dosage: 2 MG 1X PER 1 DAY ORAL
     Route: 048
     Dates: start: 20060427, end: 20060601
  2. TORSEMIDE [Concomitant]
  3. URSODIOL [Concomitant]
  4. ESOMEPRAZOLE (ESOMEPRAZOLE) [Concomitant]
  5. CIPROFLOXACIN [Concomitant]
  6. PRIMAXIN [Concomitant]
  7. ALLOPURINOL [Concomitant]
  8. ENOXAPARIN SODIUM [Concomitant]
  9. NEORECORMON (EPOETIN  BETA) [Concomitant]
  10. CELLCEPT [Concomitant]

REACTIONS (5)
  - CHOLESTASIS [None]
  - DIARRHOEA [None]
  - HEPATIC ARTERY STENOSIS [None]
  - PLEURAL EFFUSION [None]
  - TRANSPLANT REJECTION [None]
